FAERS Safety Report 8728704 (Version 3)
Quarter: 2012Q4

REPORT INFORMATION
  Report Type: Report from Study
  Country: DE (occurrence: DE)
  Receive Date: 20120817
  Receipt Date: 20120907
  Transmission Date: 20130627
  Serious: Yes (Death, Hospitalization)
  Sender: FDA-Public Use
  Company Number: PHHO2011DE04466

PATIENT
  Age: 80 Year
  Sex: Male
  Weight: 75 kg

DRUGS (8)
  1. AMN107 [Suspect]
     Indication: CHRONIC MYELOID LEUKAEMIA
     Dosage: 400 mg, BID
     Route: 048
     Dates: start: 20050808, end: 20110330
  2. PREDNISONE [Concomitant]
  3. OMEPRAZOL [Concomitant]
  4. ENALAPRIL [Concomitant]
  5. HYDROCHLOROTHIAZIDE [Concomitant]
  6. AMLODIPINE [Concomitant]
  7. BETAHISTINE [Concomitant]
  8. MAGNESIUM [Concomitant]

REACTIONS (5)
  - Cerebellar infarction [Fatal]
  - Brain oedema [Fatal]
  - Brain herniation [Fatal]
  - Dizziness [Recovered/Resolved]
  - Vertigo [Recovered/Resolved]
